FAERS Safety Report 4465945-5 (Version None)
Quarter: 2004Q3

REPORT INFORMATION
  Report Type: 
  Country: None (occurrence: None)
  Receive Date: 20040930
  Receipt Date: 20040930
  Transmission Date: 20050211
  Serious: Yes (Hospitalization)
  Sender: FDA-Public Use
  Company Number: None

PATIENT
  Sex: Male

DRUGS (12)
  1. CEFUROXIME [Suspect]
     Indication: PNEUMONIA
     Dosage: 500 MG BID ORAL
     Route: 048
     Dates: start: 20040524, end: 20040603
  2. AZITHROMYCIN [Suspect]
     Indication: PNEUMONIA
     Dosage: 250 MG BID ORAL
     Route: 048
     Dates: start: 20040524, end: 20040526
  3. FERROUS SULFATE TAB [Concomitant]
  4. AMITRIPTYLINE HCL [Concomitant]
  5. METOPROLOL [Concomitant]
  6. ALBUTEROL [Concomitant]
  7. ASPIRIN [Concomitant]
  8. LEVOTHYROXINE SODIUM [Concomitant]
  9. OMEPRAZOLE [Concomitant]
  10. SIMVASTATIN [Concomitant]
  11. CLOPIDOGREL [Concomitant]
  12. CEFTRIAXONE SODIUM [Concomitant]

REACTIONS (2)
  - DEHYDRATION [None]
  - DIARRHOEA [None]
